FAERS Safety Report 16008716 (Version 1)
Quarter: 2019Q1

REPORT INFORMATION
  Report Type: Spontaneous
  Country: US (occurrence: US)
  Receive Date: 20190225
  Receipt Date: 20190225
  Transmission Date: 20190418
  Serious: No
  Sender: FDA-Public Use
  Company Number: US-TEVA-2019-US-1006010

PATIENT
  Age: 86 Year
  Sex: Female

DRUGS (1)
  1. ACETAMINOPHEN W/BUTALBITAL W/CAFFEINE [Suspect]
     Active Substance: ACETAMINOPHEN\BUTALBITAL\CAFFEINE
     Indication: MIGRAINE
     Dosage: DOSE STRENGTH OF BUTALBITAL 50MG, ACETAMINOPHEN 300MG AND CAFFEINE 40 MG CAPSULES
     Route: 065

REACTIONS (3)
  - Product use in unapproved indication [Unknown]
  - Product substitution issue [Unknown]
  - Drug ineffective [Unknown]
